FAERS Safety Report 7323180-7 (Version None)
Quarter: 2011Q1

REPORT INFORMATION
  Report Type: 
  Country: None (occurrence: None)
  Receive Date: 20110301
  Receipt Date: 20110224
  Transmission Date: 20110831
  Serious: Yes (Other)
  Sender: FDA-Public Use
  Company Number: FR-PFIZER INC-2011040441

PATIENT
  Age: 51 Year
  Sex: Female

DRUGS (3)
  1. CHAMPIX [Suspect]
     Dosage: UNK
     Dates: start: 20101120, end: 20110108
  2. CHAMPIX [Suspect]
     Dosage: UNK
     Dates: start: 20101013, end: 20101030
  3. STAGID [Concomitant]
     Indication: DIABETES MELLITUS
     Dosage: UNK

REACTIONS (2)
  - DEPRESSIVE SYMPTOM [None]
  - SUICIDAL IDEATION [None]
